FAERS Safety Report 7774160-9 (Version None)
Quarter: 2011Q3

REPORT INFORMATION
  Report Type: 
  Country: None (occurrence: None)
  Receive Date: 20110921
  Receipt Date: 20110906
  Transmission Date: 20111222
  Serious: Yes (Hospitalization)
  Sender: FDA-Public Use
  Company Number: 2011MA013062

PATIENT
  Sex: Female

DRUGS (4)
  1. DICLOFENAC SODIUM [Suspect]
     Indication: BACK PAIN
     Dosage: 50 MG;QD;PO
     Route: 048
     Dates: start: 20020101
  2. DICLOFENAC SODIUM [Suspect]
     Indication: OSTEOARTHRITIS
     Dosage: 50 MG;QD;PO
     Route: 048
     Dates: start: 20020101
  3. LOXOPROFEN (LOXOPROFEN) [Suspect]
     Indication: BACK PAIN
     Dosage: 180 MG;QD;PO
     Route: 048
     Dates: start: 20020101
  4. LOXOPROFEN (LOXOPROFEN) [Suspect]
     Indication: OSTEOARTHRITIS
     Dosage: 180 MG;QD;PO
     Route: 048
     Dates: start: 20020101

REACTIONS (3)
  - BLOOD LACTATE DEHYDROGENASE INCREASED [None]
  - JEJUNAL ULCER [None]
  - ENTERITIS [None]
